FAERS Safety Report 6694227-6 (Version None)
Quarter: 2010Q2

REPORT INFORMATION
  Report Type: 
  Country: None (occurrence: None)
  Receive Date: 20100421
  Receipt Date: 20100406
  Transmission Date: 20101027
  Serious: Yes (Hospitalization)
  Sender: FDA-Public Use
  Company Number: B0647303A

PATIENT
  Age: 62 Year
  Sex: Female

DRUGS (2)
  1. CALCIUM CARBONATE [Suspect]
  2. CALCIUM SALT [Suspect]

REACTIONS (3)
  - BLOOD CREATINE INCREASED [None]
  - BLOOD PARATHYROID HORMONE DECREASED [None]
  - MILK-ALKALI SYNDROME [None]
